FAERS Safety Report 21447912 (Version 1)
Quarter: 2022Q4

REPORT INFORMATION
  Report Type: Spontaneous
  Country: RU (occurrence: None)
  Receive Date: 20221012
  Receipt Date: 20221012
  Transmission Date: 20230113
  Serious: Yes (Hospitalization, Other)
  Sender: FDA-Public Use
  Company Number: 2022A342868

PATIENT
  Age: 48 Year
  Sex: Male

DRUGS (1)
  1. SYMBICORT [Suspect]
     Active Substance: BUDESONIDE\FORMOTEROL FUMARATE DIHYDRATE
     Indication: Asthma
     Dosage: 160/4,5 MCG/INHALATION 2 INHALATIONS 2 TIMES A DAY
     Route: 055

REACTIONS (2)
  - COVID-19 [Recovered/Resolved]
  - Asthma [Recovered/Resolved]
